FAERS Safety Report 7442451-7 (Version None)
Quarter: 2011Q2

REPORT INFORMATION
  Report Type: 
  Country: None (occurrence: None)
  Receive Date: 20110420
  Receipt Date: 20110411
  Transmission Date: 20111010
  Serious: Yes (Other)
  Sender: FDA-Public Use
  Company Number: 2011SP001159

PATIENT
  Age: 58 Year
  Sex: Female
  Weight: 63.5 kg

DRUGS (3)
  1. REQUIP [Concomitant]
  2. NORTRIPTYLINE HCL [Suspect]
     Indication: INSOMNIA
     Dosage: PRN;
  3. LUNESTA [Suspect]
     Indication: INSOMNIA
     Dosage: PRN;ORAL
     Route: 048
     Dates: start: 20010301

REACTIONS (5)
  - INTENTIONAL OVERDOSE [None]
  - ABASIA [None]
  - SUICIDE ATTEMPT [None]
  - SOMNOLENCE [None]
  - INCOHERENT [None]
